FAERS Safety Report 22614006 (Version 1)
Quarter: 2023Q2

REPORT INFORMATION
  Report Type: Spontaneous
  Country: US (occurrence: US)
  Receive Date: 20230619
  Receipt Date: 20230619
  Transmission Date: 20230722
  Serious: Yes (Hospitalization, Other)
  Sender: FDA-Public Use
  Company Number: US-SPC-000249

PATIENT
  Age: 83 Year
  Sex: Female

DRUGS (4)
  1. METRONIDAZOLE [Suspect]
     Active Substance: METRONIDAZOLE
     Indication: Clostridium difficile colitis
     Route: 042
  2. VANCOMYCIN [Suspect]
     Active Substance: VANCOMYCIN
     Indication: Clostridium difficile colitis
     Route: 048
  3. PIPERACILLIN AND TAZOBACTAM [Suspect]
     Active Substance: PIPERACILLIN SODIUM\TAZOBACTAM SODIUM
     Indication: Superinfection bacterial
     Route: 065
  4. VANCOMYCIN [Suspect]
     Active Substance: VANCOMYCIN
     Indication: Clostridium difficile colitis
     Route: 054

REACTIONS (10)
  - Mental disorder [Unknown]
  - Septic shock [Unknown]
  - Sepsis [Unknown]
  - Condition aggravated [Unknown]
  - Cholecystitis [Unknown]
  - Generalised oedema [Unknown]
  - Atrial fibrillation [Unknown]
  - Hepatic function abnormal [Unknown]
  - Lactic acidosis [Unknown]
  - Product use in unapproved indication [Unknown]
